FAERS Safety Report 7903532-4 (Version None)
Quarter: 2011Q4

REPORT INFORMATION
  Report Type: 
  Country: None (occurrence: None)
  Receive Date: 20111109
  Receipt Date: 20110325
  Transmission Date: 20120403
  Serious: No
  Sender: FDA-Public Use
  Company Number: US-BAYER-2011-027419

PATIENT
  Sex: Male

DRUGS (4)
  1. MICONAZOLE NITRATE [Concomitant]
     Dosage: UNK
     Dates: start: 20110307
  2. FLOMAX [Concomitant]
     Dosage: 0.4 MG, HS
     Dates: start: 20110225
  3. FUROSEMIDE [Concomitant]
     Dosage: UNK
     Dates: start: 20101209
  4. NEXAVAR [Suspect]
     Indication: NEOPLASM MALIGNANT
     Dosage: 400 MG, BID
     Dates: start: 20110226

REACTIONS (1)
  - GENITAL RASH [None]
